FAERS Safety Report 4845202-5 (Version None)
Quarter: 2005Q4

REPORT INFORMATION
  Report Type: 
  Country: None (occurrence: None)
  Receive Date: 20051115
  Receipt Date: 20050817
  Transmission Date: 20060501
  Serious: Yes (Other)
  Sender: FDA-Public Use
  Company Number: 414815

PATIENT
  Age: 53 Year
  Sex: Female

DRUGS (5)
  1. PEGASYS [Suspect]
     Indication: HEPATITIS C VIRUS
     Dosage: 180 MCG 1 PER ONE DOSE SUBCUTANEOUS
     Route: 058
     Dates: start: 20040615, end: 20040615
  2. COPEGUS [Suspect]
     Indication: HEPATITIS C VIRUS
     Dosage: 1000 MG DAILY ORAL
     Route: 048
     Dates: start: 20040615, end: 20040615
  3. COMBIVENT [Concomitant]
  4. SEREVENT [Concomitant]
  5. FORADIL [Concomitant]

REACTIONS (12)
  - ADVERSE EVENT [None]
  - CHEST DISCOMFORT [None]
  - CHILLS [None]
  - DYSPNOEA [None]
  - ERYTHEMA [None]
  - HYPERSENSITIVITY [None]
  - INFLUENZA LIKE ILLNESS [None]
  - INJECTION SITE REACTION [None]
  - OESOPHAGEAL PAIN [None]
  - RASH PRURITIC [None]
  - SKIN DISCOLOURATION [None]
  - VISION BLURRED [None]
